FAERS Safety Report 10645467 (Version 2)
Quarter: 2014Q4

REPORT INFORMATION
  Report Type: Report from Study
  Country: BR (occurrence: BR)
  Receive Date: 20141211
  Receipt Date: 20141211
  Transmission Date: 20150529
  Serious: Yes (Hospitalization)
  Sender: FDA-Public Use
  Company Number: BR-EMD SERONO-7334226

PATIENT
  Age: 15 Year
  Sex: Female

DRUGS (1)
  1. REBIF [Suspect]
     Active Substance: INTERFERON BETA-1A
     Indication: RELAPSING-REMITTING MULTIPLE SCLEROSIS
     Route: 058
     Dates: start: 20141031, end: 20141107

REACTIONS (6)
  - Abdominal pain [Recovered/Resolved]
  - Chills [Recovered/Resolved]
  - Paraesthesia [Recovering/Resolving]
  - Central nervous system lesion [Unknown]
  - Inflammation [Unknown]
  - Feeling of body temperature change [Recovered/Resolved]

NARRATIVE: CASE EVENT DATE: 20141031
